FAERS Safety Report 14090636 (Version 1)
Quarter: 2017Q4

REPORT INFORMATION
  Report Type: Spontaneous
  Country: US (occurrence: US)
  Receive Date: 20171015
  Receipt Date: 20171015
  Transmission Date: 20180321
  Serious: No
  Sender: FDA-Public Use
  Company Number: US-SA-2017SA135187

PATIENT
  Age: 61 Year
  Sex: Female

DRUGS (1)
  1. AUBAGIO [Suspect]
     Active Substance: TERIFLUNOMIDE
     Indication: MULTIPLE SCLEROSIS
     Route: 048
     Dates: start: 20160409

REACTIONS (6)
  - Ulcer [Unknown]
  - Rash [Unknown]
  - Erythema [Unknown]
  - Nausea [Unknown]
  - Migraine [Unknown]
  - Rash [Unknown]

NARRATIVE: CASE EVENT DATE: 20170717
